FAERS Safety Report 7344349-1 (Version None)
Quarter: 2011Q1

REPORT INFORMATION
  Report Type: 
  Country: None (occurrence: None)
  Receive Date: 20110310
  Receipt Date: 20101207
  Transmission Date: 20110831
  Serious: No
  Sender: FDA-Public Use
  Company Number: A0898335A

PATIENT
  Sex: Female

DRUGS (3)
  1. NICORETTE [Suspect]
  2. NICOTINE POLACRILEX [Suspect]
  3. NICORETTE (MINT) [Suspect]

REACTIONS (3)
  - INTENTIONAL DRUG MISUSE [None]
  - DRUG INEFFECTIVE [None]
  - PAIN [None]
